FAERS Safety Report 10177981 (Version 1)
Quarter: 2014Q2

REPORT INFORMATION
  Report Type: Report from Study
  Country: US (occurrence: US)
  Receive Date: 20140516
  Receipt Date: 20140516
  Transmission Date: 20141212
  Serious: Yes (Hospitalization)
  Sender: FDA-Public Use
  Company Number: US-ALEXION PHARMACEUTICALS INC.-A201401766

PATIENT
  Sex: 0

DRUGS (6)
  1. SOLIRIS [Suspect]
     Indication: PAROXYSMAL NOCTURNAL HAEMOGLOBINURIA
     Dosage: 900 MG, Q2W
     Route: 042
     Dates: start: 20090316
  2. COUMADIN                           /00014802/ [Concomitant]
     Indication: ANTICOAGULANT THERAPY
     Dosage: 2.5 MG, TID
     Route: 065
     Dates: start: 20090108
  3. COUMADIN                           /00014802/ [Concomitant]
     Dosage: 2 MG, UNK X 4 TIMES PER WEEK
     Route: 065
     Dates: start: 20090108
  4. PREDNISONE [Concomitant]
     Indication: STEROID THERAPY
     Dosage: UNK, QD 3 TABS
     Route: 065
     Dates: start: 20090108
  5. INSULIN [Concomitant]
     Indication: PRODUCT USED FOR UNKNOWN INDICATION
     Dosage: UNK, QD
     Route: 065
     Dates: start: 20100426
  6. LEXAPRO [Concomitant]
     Indication: PRODUCT USED FOR UNKNOWN INDICATION
     Dosage: UNK, QD
     Route: 065
     Dates: start: 20100426

REACTIONS (1)
  - Bronchitis [Recovering/Resolving]
